FAERS Safety Report 21347855 (Version 1)
Quarter: 2022Q3

REPORT INFORMATION
  Report Type: Spontaneous
  Country: US (occurrence: US)
  Receive Date: 20220919
  Receipt Date: 20220919
  Transmission Date: 20221027
  Serious: No
  Sender: FDA-Public Use
  Company Number: US-ALVGEN-2022-ALVOGEN-120737

PATIENT
  Sex: Female

DRUGS (1)
  1. DISULFIRAM [Suspect]
     Active Substance: DISULFIRAM
     Indication: Product used for unknown indication

REACTIONS (2)
  - Labelled drug-food interaction issue [Unknown]
  - Illness [Unknown]
